FAERS Safety Report 17488197 (Version 2)
Quarter: 2020Q1

REPORT INFORMATION
  Report Type: Spontaneous
  Country: US (occurrence: US)
  Receive Date: 20200303
  Receipt Date: 20200304
  Transmission Date: 20200409
  Serious: No
  Sender: FDA-Public Use
  Company Number: US-PFIZER INC-2015146461

PATIENT
  Age: 59 Year
  Sex: Male

DRUGS (2)
  1. LYRICA [Suspect]
     Active Substance: PREGABALIN
     Indication: NEUROPATHY PERIPHERAL
     Dosage: 150 MG, 3X/DAY (TAKE 1 CAPSULE BY MOUTH THREE TIMES A DAY)
     Route: 048
     Dates: start: 20150414
  2. LYRICA [Suspect]
     Active Substance: PREGABALIN
     Indication: ROTATOR CUFF SYNDROME
     Dosage: 1 DF, DAILY; (ONE PILL A DAY)

REACTIONS (2)
  - Burning sensation [Unknown]
  - Intentional product use issue [Unknown]
